FAERS Safety Report 6789704-3 (Version None)
Quarter: 2010Q2

REPORT INFORMATION
  Report Type: 
  Country: None (occurrence: None)
  Receive Date: 20100624
  Receipt Date: 20100311
  Transmission Date: 20101027
  Serious: Yes (Other)
  Sender: FDA-Public Use
  Company Number: US-ASTRAZENECA-2008UW16055

PATIENT
  Age: 51 Year
  Sex: Male
  Weight: 90.3 kg

DRUGS (11)
  1. SEROQUEL [Suspect]
     Indication: SCHIZOPHRENIA
     Route: 048
     Dates: start: 19991207
  2. SEROQUEL [Suspect]
     Indication: DEPRESSION
     Route: 048
     Dates: start: 19991207
  3. SEROQUEL [Suspect]
     Route: 048
     Dates: start: 20010101, end: 20071211
  4. SEROQUEL [Suspect]
     Route: 048
     Dates: start: 20010101, end: 20071211
  5. ZYPREXA [Concomitant]
     Dates: start: 19991207, end: 20020101
  6. ABILIFY [Concomitant]
     Dates: start: 20060101, end: 20080101
  7. HALDOL [Concomitant]
     Dates: start: 19991207, end: 20070101
  8. STELAZINE [Concomitant]
     Dates: start: 19860101, end: 19910101
  9. THORAZINE [Concomitant]
     Dates: start: 19930101
  10. LITHIUM [Concomitant]
  11. TRAZODONE HYDROCHLORIDE [Concomitant]

REACTIONS (6)
  - BLOOD CHOLESTEROL INCREASED [None]
  - DIABETIC NEUROPATHY [None]
  - ERECTILE DYSFUNCTION [None]
  - MYOCARDIAL INFARCTION [None]
  - ROAD TRAFFIC ACCIDENT [None]
  - TYPE 2 DIABETES MELLITUS [None]
